FAERS Safety Report 5146166-X (Version None)
Quarter: 2006Q4

REPORT INFORMATION
  Report Type: 
  Country: None (occurrence: None)
  Receive Date: 20061108
  Receipt Date: 20061017
  Transmission Date: 20070319
  Serious: Yes (Life-Threatening, Hospitalization)
  Sender: FDA-Public Use
  Company Number: CN-ROCHE-467343

PATIENT
  Age: 55 Year
  Sex: Female
  Weight: 43 kg

DRUGS (9)
  1. MYCOPHENOLATE MOFETIL [Suspect]
     Indication: LUPUS NEPHRITIS
     Route: 048
     Dates: start: 20060726, end: 20061016
  2. MYCOPHENOLATE MOFETIL [Suspect]
     Dosage: TEMPORARILY INTERRUPTED.
     Route: 048
     Dates: start: 20061017, end: 20061022
  3. PREDNISONE TAB [Suspect]
     Indication: LUPUS NEPHRITIS
     Route: 065
     Dates: start: 19970615
  4. OMEPRAZOLE [Concomitant]
     Dates: start: 20060626, end: 20061022
  5. CALCITRIOL [Concomitant]
     Dates: start: 20060126, end: 20061022
  6. CALCICHEW [Concomitant]
     Dates: start: 20060711, end: 20061022
  7. ASPIRIN [Concomitant]
     Dates: start: 20060711, end: 20061015
  8. IRBESARTAN [Concomitant]
     Dates: start: 20060720, end: 20061022
  9. LESCOL [Concomitant]
     Dates: start: 20060725, end: 20061022

REACTIONS (5)
  - BLOOD UREA INCREASED [None]
  - HAEMOGLOBIN INCREASED [None]
  - INTERSTITIAL LUNG DISEASE [None]
  - NEUTROPHIL COUNT INCREASED [None]
  - PLATELET COUNT DECREASED [None]
